FAERS Safety Report 21741182 (Version 1)
Quarter: 2022Q4

REPORT INFORMATION
  Report Type: Spontaneous
  Country: US (occurrence: US)
  Receive Date: 20221216
  Receipt Date: 20221216
  Transmission Date: 20230113
  Serious: No
  Sender: FDA-Public Use
  Company Number: US-BRISTOL-MYERS SQUIBB COMPANY-2022-154252

PATIENT
  Age: 44 Year
  Sex: Female

DRUGS (1)
  1. REVLIMID [Suspect]
     Active Substance: LENALIDOMIDE
     Indication: Plasma cell myeloma
     Dosage: ONCE DAILY DAYS1-14 THEN 7 DAYS OFF
     Route: 048
     Dates: start: 202211

REACTIONS (4)
  - Constipation [Unknown]
  - Heart rate increased [Unknown]
  - Rash [Unknown]
  - Off label use [Unknown]
